FAERS Safety Report 8488785-9 (Version None)
Quarter: 2012Q3

REPORT INFORMATION
  Report Type: 
  Country: None (occurrence: None)
  Receive Date: 20120705
  Receipt Date: 20120627
  Transmission Date: 20120928
  Serious: Yes (Other)
  Sender: FDA-Public Use
  Company Number: HU-PFIZER INC-2012156464

PATIENT

DRUGS (4)
  1. CYCLOPHOSPHAMIDE [Suspect]
     Indication: LYMPHOMA
  2. PREDNISONE TAB [Suspect]
     Indication: LYMPHOMA
  3. DOXORUBICIN HCL [Suspect]
     Indication: LYMPHOMA
  4. VINCRISTINE [Suspect]
     Indication: LYMPHOMA

REACTIONS (2)
  - PNEUMONIA [None]
  - RESPIRATORY FAILURE [None]
